FAERS Safety Report 5205613-5 (Version None)
Quarter: 2007Q1

REPORT INFORMATION
  Report Type: 
  Country: None (occurrence: None)
  Receive Date: 20070111
  Receipt Date: 20070104
  Transmission Date: 20070707
  Serious: Yes (Other)
  Sender: FDA-Public Use
  Company Number: US-ELI_LILLY_AND_COMPANY-US200701000959

PATIENT
  Age: 77 Year
  Sex: Female

DRUGS (1)
  1. HUMALOG MIX 75/25 [Suspect]
     Indication: DIABETES MELLITUS
     Dosage: UNK, UNKNOWN
     Dates: start: 20030101

REACTIONS (6)
  - DIALYSIS [None]
  - PHARMACEUTICAL PRODUCT COMPLAINT [None]
  - RENAL FAILURE [None]
  - RENAL IMPAIRMENT [None]
  - SKIN DISORDER [None]
  - WRONG TECHNIQUE IN DRUG USAGE PROCESS [None]
